FAERS Safety Report 5951970-1 (Version None)
Quarter: 2008Q4

REPORT INFORMATION
  Report Type: 
  Country: None (occurrence: None)
  Receive Date: 20081113
  Receipt Date: 20071010
  Transmission Date: 20090506
  Serious: No
  Sender: FDA-Public Use
  Company Number: A0686932A

PATIENT
  Age: 65 Year
  Sex: Female

DRUGS (6)
  1. CARVEDILOL [Suspect]
     Indication: CARDIOMYOPATHY
     Dosage: 25MG TWICE PER DAY
     Route: 048
     Dates: start: 20050101
  2. DIGOXIN [Concomitant]
  3. LISINOPRIL [Concomitant]
  4. LASIX [Concomitant]
  5. MAGNESIUM SULFATE [Concomitant]
  6. SPIRONOLACTONE [Concomitant]

REACTIONS (2)
  - SENSATION OF HEAVINESS [None]
  - SOMNOLENCE [None]
